FAERS Safety Report 6309136-1 (Version None)
Quarter: 2009Q3

REPORT INFORMATION
  Report Type: 
  Country: None (occurrence: None)
  Receive Date: 20090814
  Receipt Date: 20090420
  Transmission Date: 20100115
  Serious: No
  Sender: FDA-Public Use
  Company Number: A0779678A

PATIENT
  Age: 55 Year
  Sex: Male

DRUGS (4)
  1. COREG CR [Suspect]
     Indication: HYPERTENSION
     Dosage: 40MG PER DAY
     Route: 048
     Dates: start: 20070101
  2. FLONASE [Concomitant]
  3. ADVAIR HFA [Concomitant]
  4. NEXIUM [Concomitant]

REACTIONS (2)
  - FATIGUE [None]
  - PARAESTHESIA [None]
